FAERS Safety Report 15524253 (Version 1)
Quarter: 2018Q4

REPORT INFORMATION
  Report Type: Spontaneous
  Country: US (occurrence: US)
  Receive Date: 20181015
  Receipt Date: 20181015
  Transmission Date: 20190205
  Serious: Yes (Other)
  Sender: FDA-Public Use
  Company Number: None

PATIENT
  Age: 22 Year
  Sex: Female
  Weight: 110 kg

DRUGS (2)
  1. ORTHO CYCLEN [Suspect]
     Active Substance: ETHINYL ESTRADIOL\NORGESTIMATE
     Dates: start: 20181007, end: 20181014
  2. LEXAPRO [Suspect]
     Active Substance: ESCITALOPRAM OXALATE
     Dates: start: 20181007, end: 20181014

REACTIONS (1)
  - Suppressed lactation [None]

NARRATIVE: CASE EVENT DATE: 20181014
